FAERS Safety Report 9335069 (Version 1)
Quarter: 2013Q2

REPORT INFORMATION
  Report Type: Spontaneous
  Country: GB (occurrence: GB)
  Receive Date: 20130606
  Receipt Date: 20130606
  Transmission Date: 20140414
  Serious: Yes (Other)
  Sender: FDA-Public Use
  Company Number: GB-MERCK-1305GBR017077

PATIENT
  Age: 74 Year
  Sex: Female
  Weight: 58.51 kg

DRUGS (14)
  1. SIMVASTATIN [Suspect]
     Dosage: 1 DF, QD
     Route: 048
  2. ATORVASTATIN [Suspect]
     Indication: HYPERCHOLESTEROLAEMIA
     Dosage: 10 MG, QD
     Route: 048
  3. ATORVASTATIN [Suspect]
     Indication: CEREBROVASCULAR ACCIDENT
  4. BEZAFIBRATE [Suspect]
     Indication: HYPERCHOLESTEROLAEMIA
     Dosage: 400 MG, QD
     Route: 048
  5. BEZAFIBRATE [Suspect]
     Indication: CEREBROVASCULAR ACCIDENT
  6. LIPITOR [Suspect]
     Indication: HYPERCHOLESTEROLAEMIA
     Dosage: 1 DF, QD
     Route: 048
  7. LIPITOR [Suspect]
     Indication: CEREBROVASCULAR ACCIDENT
  8. PRAVASTATIN SODIUM [Suspect]
     Indication: HYPERCHOLESTEROLAEMIA
     Dosage: 1 DF, QD
     Route: 048
  9. PRAVASTATIN SODIUM [Suspect]
     Indication: CEREBROVASCULAR ACCIDENT
  10. BENDROFLUMETHIAZIDE [Concomitant]
  11. BISOPROLOL FUMARATE [Concomitant]
  12. CLOPIDOGREL HYDROCHLORIDE [Concomitant]
  13. LEVOTHYROXINE SODIUM [Concomitant]
  14. LOSARTAN POTASSIUM 25 MG FILM-COATED TABLETS [Concomitant]

REACTIONS (3)
  - Vision blurred [Recovered/Resolved]
  - Myalgia [Recovered/Resolved with Sequelae]
  - Nausea [Recovered/Resolved]
